FAERS Safety Report 24682859 (Version 1)
Quarter: 2024Q4

REPORT INFORMATION
  Report Type: Spontaneous
  Country: GB (occurrence: GB)
  Receive Date: 20241201
  Receipt Date: 20241201
  Transmission Date: 20250114
  Serious: Yes (Other)
  Sender: AUROBINDO
  Company Number: GB-MHRA-TPP18680838C8863078YC1732012358863

PATIENT
  Age: 64 Year
  Sex: Male
  Weight: 86 kg

DRUGS (4)
  1. ATORVASTATIN [Suspect]
     Active Substance: ATORVASTATIN
     Indication: Ill-defined disorder
     Dosage: UNK
     Route: 065
     Dates: start: 20231017, end: 20241119
  2. BIMATOPROST [Concomitant]
     Active Substance: BIMATOPROST
     Indication: Ill-defined disorder
     Dosage: 1 DROP, ONCE A DAY (APPLY ONE DROP ONCE DAILY TO BOTH EYES AT NIGHT)
     Route: 065
     Dates: start: 20230911
  3. HYLO TEAR [Concomitant]
     Indication: Ill-defined disorder
     Dosage: UNK UNK, FOUR TIMES/DAY (USE FOUR TIMES A DAY BE)
     Route: 065
     Dates: start: 20231108
  4. EZETIMIBE [Concomitant]
     Active Substance: EZETIMIBE
     Indication: Ill-defined disorder
     Dosage: UNK UNK, DAILY (TAKE ONE DAILY)
     Route: 065
     Dates: start: 20241119

REACTIONS (1)
  - Muscular weakness [Recovered/Resolved]

NARRATIVE: CASE EVENT DATE: 20240917
